FAERS Safety Report 23931006 (Version 2)
Quarter: 2024Q3

REPORT INFORMATION
  Report Type: Spontaneous
  Country: US (occurrence: US)
  Receive Date: 20240603
  Receipt Date: 20240703
  Transmission Date: 20241016
  Serious: Yes (Hospitalization, Other)
  Sender: GRAVITI PHARMACEUTICALS
  Company Number: US-GRAVITIPHARMA-GRA-2405-US-LIT-0154

PATIENT
  Age: 57 Year
  Sex: Female

DRUGS (3)
  1. BUPROPION HYDROCHLORIDE [Suspect]
     Active Substance: BUPROPION HYDROCHLORIDE
     Indication: Product used for unknown indication
  2. CHLORDIAZEPOXIDE [Suspect]
     Active Substance: CHLORDIAZEPOXIDE
     Indication: Product used for unknown indication
  3. PROPRANOLOL [Suspect]
     Active Substance: PROPRANOLOL HYDROCHLORIDE
     Indication: Product used for unknown indication

REACTIONS (10)
  - Generalised tonic-clonic seizure [Unknown]
  - Cardiogenic shock [Recovered/Resolved]
  - Acute kidney injury [Unknown]
  - Coma [Unknown]
  - Myocardial ischaemia [Unknown]
  - Right ventricle outflow tract obstruction [Unknown]
  - Renal tubular necrosis [Unknown]
  - Areflexia [Recovered/Resolved]
  - Ejection fraction decreased [Unknown]
  - Intentional overdose [Unknown]
